FAERS Safety Report 8133668-7 (Version None)
Quarter: 2012Q1

REPORT INFORMATION
  Report Type: 
  Country: None (occurrence: None)
  Receive Date: 20120213
  Receipt Date: 20120209
  Transmission Date: 20120608
  Serious: Yes (Hospitalization)
  Sender: FDA-Public Use
  Company Number: BR-PFIZER INC-2012035916

PATIENT
  Age: 34 Year
  Sex: Male
  Weight: 104 kg

DRUGS (1)
  1. VARENICLINE TARTRATE [Suspect]
     Indication: SMOKING CESSATION THERAPY
     Dosage: 0.5 MG, 1X/DAY
     Route: 048
     Dates: start: 20120207, end: 20120208

REACTIONS (4)
  - FEELING ABNORMAL [None]
  - DIZZINESS [None]
  - PANIC REACTION [None]
  - MOOD ALTERED [None]
